FAERS Safety Report 9249811 (Version 1)
Quarter: 2013Q2

REPORT INFORMATION
  Report Type: Report from Study
  Country: US (occurrence: US)
  Receive Date: 20130423
  Receipt Date: 20130423
  Transmission Date: 20140414
  Serious: Yes (Other)
  Sender: FDA-Public Use
  Company Number: US-US-EMD SERONO, INC.-7206158

PATIENT
  Sex: Female

DRUGS (1)
  1. REBIF [Suspect]
     Indication: PRODUCT USED FOR UNKNOWN INDICATION
     Route: 058
     Dates: start: 20130102

REACTIONS (5)
  - Uterine enlargement [Unknown]
  - Salpingitis [Unknown]
  - Neoplasm malignant [Unknown]
  - Papilloma viral infection [Unknown]
  - Influenza like illness [Unknown]
